FAERS Safety Report 12766865 (Version 1)
Quarter: 2016Q3

REPORT INFORMATION
  Report Type: Spontaneous
  Country: IT (occurrence: IT)
  Receive Date: 20160921
  Receipt Date: 20160921
  Transmission Date: 20161109
  Serious: Yes (Other)
  Sender: FDA-Public Use
  Company Number: IT-AUROBINDO-AUR-APL-2016-11563

PATIENT
  Age: 71 Year
  Sex: Male

DRUGS (1)
  1. ALFUZOSIN [Suspect]
     Active Substance: ALFUZOSIN
     Indication: BENIGN PROSTATIC HYPERPLASIA
     Dosage: 20 MG, DAILY
     Route: 048
     Dates: start: 20160402, end: 20160408

REACTIONS (2)
  - Medication error [Unknown]
  - Hypotension [Unknown]

NARRATIVE: CASE EVENT DATE: 20160408
